FAERS Safety Report 9118199 (Version 1)
Quarter: 2013Q1

REPORT INFORMATION
  Report Type: Report from Study
  Country: US (occurrence: US)
  Receive Date: 20130129
  Receipt Date: 20130129
  Transmission Date: 20140127
  Serious: No
  Sender: FDA-Public Use
  Company Number: US-ABBOTT-12P-163-0939407-00

PATIENT
  Age: 33 Year
  Sex: Female

DRUGS (4)
  1. HUMIRA 40 MG/0.8 ML PEN [Suspect]
     Indication: CROHN^S DISEASE
     Dates: start: 201105
  2. AMBIEN [Concomitant]
     Indication: INSOMNIA
     Dosage: AT NIGHT
  3. MIRENA [Concomitant]
     Indication: CONTRACEPTION
  4. VITAMIN D [Concomitant]
     Indication: VITAMIN D DECREASED
     Dates: start: 201110

REACTIONS (4)
  - Hypomenorrhoea [Not Recovered/Not Resolved]
  - Upper respiratory tract congestion [Not Recovered/Not Resolved]
  - Rash pruritic [Not Recovered/Not Resolved]
  - Rash erythematous [Not Recovered/Not Resolved]
